FAERS Safety Report 18124693 (Version 3)
Quarter: 2020Q3

REPORT INFORMATION
  Report Type: Report from Study
  Country: JP (occurrence: JP)
  Receive Date: 20200807
  Receipt Date: 20200915
  Transmission Date: 20201103
  Serious: Yes (Hospitalization, Other)
  Sender: FDA-Public Use
  Company Number: JP-ALNYLAM PHARMACEUTICALS, INC.-ALN-2020-001073

PATIENT

DRUGS (11)
  1. DEPAKENE [Concomitant]
     Active Substance: VALPROIC ACID
     Indication: HEREDITARY NEUROPATHIC AMYLOIDOSIS
     Dosage: UNK
     Route: 048
  2. TRAMCET [Concomitant]
     Active Substance: ACETAMINOPHEN\TRAMADOL
     Indication: HEREDITARY NEUROPATHIC AMYLOIDOSIS
     Dosage: UNK
     Route: 048
  3. ONPATTRO [Suspect]
     Active Substance: PATISIRAN SODIUM
     Indication: HEREDITARY NEUROPATHIC AMYLOIDOSIS
     Dosage: 2 DOSAGE FORM
     Route: 041
     Dates: start: 20191125
  4. DEXART [Concomitant]
     Active Substance: DEXAMETHASONE SODIUM PHOSPHATE
     Indication: PROPHYLAXIS
     Dosage: 10 MILLIGRAM
     Route: 041
     Dates: start: 20200129, end: 20200311
  5. ONPATTRO [Suspect]
     Active Substance: PATISIRAN SODIUM
     Dosage: 12 MILLILITER
     Route: 041
     Dates: start: 20200311, end: 20200311
  6. CALONAL [Concomitant]
     Active Substance: ACETAMINOPHEN
     Indication: PROPHYLAXIS
     Dosage: 500 MILLIGRAM
     Route: 048
     Dates: start: 20200129, end: 20200311
  7. ONPATTRO [Suspect]
     Active Substance: PATISIRAN SODIUM
     Dosage: 11.7 MILLILITER
     Route: 041
     Dates: start: 20200129, end: 20200129
  8. TRYPTANOL [Concomitant]
     Active Substance: AMITRIPTYLINE
     Indication: HEREDITARY NEUROPATHIC AMYLOIDOSIS
     Dosage: UNK
     Route: 048
  9. POLARAMINE [Concomitant]
     Active Substance: DEXCHLORPHENIRAMINE MALEATE
     Indication: PROPHYLAXIS
     Dosage: 5 MILLIGRAM
     Route: 041
     Dates: start: 20200129, end: 20200311
  10. GASTER [Concomitant]
     Active Substance: FAMOTIDINE
     Indication: PROPHYLAXIS
     Dosage: 20 MILLIGRAM
     Route: 041
     Dates: start: 20200129, end: 20200311
  11. LYRICA [Concomitant]
     Active Substance: PREGABALIN
     Indication: HEREDITARY NEUROPATHIC AMYLOIDOSIS
     Dosage: UNK
     Route: 048

REACTIONS (12)
  - Pneumonia [Unknown]
  - Infusion related reaction [Recovered/Resolved]
  - Anaemia macrocytic [Unknown]
  - Blood creatinine abnormal [Unknown]
  - Creatinine renal clearance decreased [Unknown]
  - Device related infection [Recovered/Resolved]
  - Flushing [Recovered/Resolved]
  - Weight decreased [Recovering/Resolving]
  - Urinary tract infection [Recovered/Resolved]
  - Blood pressure decreased [Unknown]
  - Infusion related reaction [Recovered/Resolved]
  - Flushing [Recovered/Resolved]

NARRATIVE: CASE EVENT DATE: 20200130
